FAERS Safety Report 7485944-9 (Version None)
Quarter: 2011Q2

REPORT INFORMATION
  Report Type: 
  Country: None (occurrence: None)
  Receive Date: 20110517
  Receipt Date: 20110210
  Transmission Date: 20111010
  Serious: Yes (Life-Threatening, Other)
  Sender: FDA-Public Use
  Company Number: US-BAYER-2011-013688

PATIENT
  Age: 40 Year
  Sex: Female

DRUGS (2)
  1. ALKA-SELTZER PLUS NIGHT COLD [Concomitant]
  2. AVELOX [Suspect]
     Indication: SINUSITIS
     Dosage: UNK
     Dates: start: 20110124, end: 20110124

REACTIONS (2)
  - CARDIAC ARREST [None]
  - BLOOD PRESSURE DECREASED [None]
